FAERS Safety Report 18213674 (Version 1)
Quarter: 2020Q3

REPORT INFORMATION
  Report Type: Spontaneous
  Country: US (occurrence: US)
  Receive Date: 20200831
  Receipt Date: 20200831
  Transmission Date: 20201103
  Serious: No
  Sender: FDA-Public Use
  Company Number: None

PATIENT
  Age: 30 Year
  Sex: Female
  Weight: 57.6 kg

DRUGS (2)
  1. DOXYCYCLINE PO 100MG BID [Concomitant]
     Dates: start: 20200813, end: 20200821
  2. CEFEPIME [Suspect]
     Active Substance: CEFEPIME HYDROCHLORIDE
     Indication: MASTITIS
     Route: 042
     Dates: start: 20200803, end: 20200821

REACTIONS (2)
  - Skin wound [None]
  - Urticaria [None]

NARRATIVE: CASE EVENT DATE: 20200820
